FAERS Safety Report 5641900-4 (Version None)
Quarter: 2008Q1

REPORT INFORMATION
  Report Type: 
  Country: None (occurrence: None)
  Receive Date: 20080131
  Receipt Date: 20071207
  Transmission Date: 20080703
  Serious: Yes (Other)
  Sender: FDA-Public Use
  Company Number: 163-21880-07110728

PATIENT
  Age: 50 Year
  Sex: Male

DRUGS (2)
  1. REVLIMID [Suspect]
     Indication: MULTIPLE MYELOMA
     Dosage: 25 MG, DAILY FOR 21 DAYS FOR 7 DAYS OFF, ORAL
     Route: 048
     Dates: start: 20061220
  2. PERCOCET [Concomitant]

REACTIONS (1)
  - PULMONARY EMBOLISM [None]
